FAERS Safety Report 5875959-6 (Version None)
Quarter: 2008Q3

REPORT INFORMATION
  Report Type: 
  Country: None (occurrence: None)
  Receive Date: 20080908
  Receipt Date: 20080908
  Transmission Date: 20090109
  Serious: Yes (Hospitalization)
  Sender: FDA-Public Use
  Company Number: None

PATIENT
  Age: 35 Year
  Sex: Male

DRUGS (1)
  1. CIPROFLOXACIN [Suspect]
     Indication: SCROTAL ABSCESS
     Dosage: 500 MG TWICE DAILY PO
     Route: 048
     Dates: start: 20080723, end: 20080808

REACTIONS (2)
  - CONJUNCTIVITIS [None]
  - STEVENS-JOHNSON SYNDROME [None]
